FAERS Safety Report 6011792-2 (Version None)
Quarter: 2008Q4

REPORT INFORMATION
  Report Type: 
  Country: None (occurrence: None)
  Receive Date: 20081218
  Receipt Date: 20080625
  Transmission Date: 20090506
  Serious: No
  Sender: FDA-Public Use
  Company Number: US-ABBOTT-08P-163-0459377-00

PATIENT
  Sex: Female
  Weight: 102.15 kg

DRUGS (2)
  1. MERIDIA [Suspect]
     Indication: WEIGHT DECREASED
     Route: 048
     Dates: start: 20080422, end: 20080521
  2. AVANDARYL [Concomitant]
     Indication: DIABETES MELLITUS
     Dosage: 4-1 MG
     Route: 048

REACTIONS (1)
  - CONTUSION [None]
